FAERS Safety Report 5597745-7 (Version None)
Quarter: 2008Q1

REPORT INFORMATION
  Report Type: 
  Country: None (occurrence: None)
  Receive Date: 20080121
  Receipt Date: 20080116
  Transmission Date: 20080703
  Serious: Yes (Life-Threatening, Hospitalization)
  Sender: FDA-Public Use
  Company Number: US-GILEAD-2008-0014993

PATIENT
  Sex: Female
  Weight: 111.9 kg

DRUGS (14)
  1. AMBRISENTAN [Suspect]
     Indication: PULMONARY HYPERTENSION
     Dates: start: 20071127, end: 20080115
  2. OXYGEN [Concomitant]
     Dates: end: 20080116
  3. CARVEDILOL [Concomitant]
     Dates: end: 20080116
  4. LISINOPRIL [Concomitant]
     Dates: end: 20080116
  5. DIGOXIN [Concomitant]
     Dates: end: 20080116
  6. FUROSEMIDE [Concomitant]
     Dates: end: 20080116
  7. METOLAZONE [Concomitant]
     Dates: end: 20080116
  8. ALLOPURINOL [Concomitant]
     Dates: end: 20080116
  9. GLUCOVANCE [Concomitant]
     Dates: end: 20080116
  10. ASPIRIN [Concomitant]
     Dates: end: 20080116
  11. POTASSIUM CHLORIDE [Concomitant]
     Dates: end: 20080116
  12. TYLENOL W/ CODEINE NO. 3 [Concomitant]
     Dates: start: 20070620, end: 20080116
  13. ZANTAC [Concomitant]
     Dates: end: 20080116
  14. AMBIEN [Concomitant]
     Dates: start: 20080102, end: 20080116

REACTIONS (1)
  - SHOCK HAEMORRHAGIC [None]
